FAERS Safety Report 23743525 (Version 2)
Quarter: 2024Q3

REPORT INFORMATION
  Report Type: Spontaneous
  Country: CA (occurrence: CA)
  Receive Date: 20240415
  Receipt Date: 20240906
  Transmission Date: 20241017
  Serious: Yes (Other)
  Sender: NOVARTIS
  Company Number: CA-SANDOZ-SDZ2024CA038269

PATIENT
  Age: 5 Year
  Sex: Female

DRUGS (5)
  1. ZOLEDRONIC ACID [Suspect]
     Active Substance: ZOLEDRONIC ACID
     Indication: Calcinosis
     Dosage: 250 MG 2 EVERY 1 DAYS
     Route: 065
  2. ZOLEDRONIC ACID [Suspect]
     Active Substance: ZOLEDRONIC ACID
     Dosage: 16 MG/KG, QD
     Route: 042
  3. ZOLEDRONIC ACID [Suspect]
     Active Substance: ZOLEDRONIC ACID
     Dosage: 0.025 MG/KG, Q3MO
     Route: 042
  4. PROBENECID [Suspect]
     Active Substance: PROBENECID
     Indication: Neoplasm
     Dosage: 750 MG, QD (1 EVERY 1 DAYS)
     Route: 065
  5. SEVELAMER [Suspect]
     Active Substance: SEVELAMER
     Indication: Calcinosis
     Dosage: UNK
     Route: 065

REACTIONS (5)
  - Calcinosis [Unknown]
  - Disease progression [Unknown]
  - Neoplasm progression [Recovered/Resolved]
  - Product use in unapproved indication [Unknown]
  - Drug ineffective for unapproved indication [Recovered/Resolved]
